FAERS Safety Report 4634237-3 (Version None)
Quarter: 2005Q2

REPORT INFORMATION
  Report Type: 
  Country: None (occurrence: None)
  Receive Date: 20050413
  Receipt Date: 20041120
  Transmission Date: 20051028
  Serious: Yes (Hospitalization)
  Sender: FDA-Public Use
  Company Number: PHEH2004US12623

PATIENT
  Age: 66 Year
  Sex: Female
  Weight: 105 kg

DRUGS (8)
  1. CATAPRES-TTS-2 [Concomitant]
  2. PROZAC [Concomitant]
     Indication: DEPRESSION
     Dosage: 60MG, DAILY
  3. WELLBUTRIN SR [Concomitant]
  4. CRESTOR [Concomitant]
     Dosage: UNK, QD
  5. ZOCOR [Concomitant]
     Indication: DYSLIPIDAEMIA
  6. DIOVAN HCT [Suspect]
     Indication: HYPERTENSION
     Dosage: UNK, UNK
     Route: 048
     Dates: start: 20041116
  7. LEVOTHYROXINE [Concomitant]
     Indication: HYPOTHYROIDISM
     Dosage: 115MCG, DAILY
  8. ATENOLOL [Concomitant]
     Indication: HYPERTENSION
     Dosage: 100MG, DAILY

REACTIONS (7)
  - ARTERIAL THROMBOSIS [None]
  - ASTHENIA [None]
  - BLOOD PRESSURE INADEQUATELY CONTROLLED [None]
  - CEREBRAL ATHEROSCLEROSIS [None]
  - HYPOAESTHESIA [None]
  - MICROANGIOPATHY [None]
  - TRANSIENT ISCHAEMIC ATTACK [None]
